FAERS Safety Report 18355801 (Version 1)
Quarter: 2020Q4

REPORT INFORMATION
  Report Type: Spontaneous
  Country: US (occurrence: US)
  Receive Date: 20201007
  Receipt Date: 20201007
  Transmission Date: 20210114
  Serious: Yes (Other)
  Sender: FDA-Public Use
  Company Number: US-SLATE RUN PHARMACEUTICALS-20US000290

PATIENT

DRUGS (2)
  1. VANCOMYCIN HYDROCHLORIDE USP [Suspect]
     Active Substance: VANCOMYCIN HYDROCHLORIDE
     Indication: BREAST CELLULITIS
     Route: 042
  2. CIPROFLOXACIN. [Concomitant]
     Active Substance: CIPROFLOXACIN
     Indication: BREAST CELLULITIS
     Route: 065

REACTIONS (3)
  - Mycobacterium chelonae infection [Recovering/Resolving]
  - Micrococcus test positive [Recovering/Resolving]
  - Propionibacterium test positive [Recovering/Resolving]
